FAERS Safety Report 7283484-3 (Version None)
Quarter: 2011Q1

REPORT INFORMATION
  Report Type: 
  Country: None (occurrence: None)
  Receive Date: 20110209
  Receipt Date: 20110131
  Transmission Date: 20110831
  Serious: Yes (Hospitalization)
  Sender: FDA-Public Use
  Company Number: PHHO2011JP02090

PATIENT
  Sex: Male

DRUGS (5)
  1. MICARDIS [Suspect]
  2. VOGLIBOSE [Suspect]
  3. SAXAGLIPTIN [Suspect]
  4. ALLEGRA [Suspect]
  5. LOCHOL [Suspect]
     Indication: DYSLIPIDAEMIA
     Dosage: 60 MG, UNK
     Route: 048
     Dates: start: 20100726

REACTIONS (2)
  - VIITH NERVE PARALYSIS [None]
  - HEMIPLEGIA [None]
